FAERS Safety Report 10082833 (Version 1)
Quarter: 2014Q2

REPORT INFORMATION
  Report Type: Report from Study
  Country: US (occurrence: US)
  Receive Date: 20140416
  Receipt Date: 20140416
  Transmission Date: 20141212
  Serious: Yes (Other)
  Sender: FDA-Public Use
  Company Number: PHEH2014US006977

PATIENT
  Sex: Female

DRUGS (9)
  1. DIOVAN [Suspect]
     Dosage: UNK UKN, UNK
  2. DIOVAN HCT [Suspect]
     Dosage: 1 DF (160 MG VALS+12.5 MG HCT), UNK
     Dates: start: 1995
  3. AMANTADINE [Concomitant]
  4. BACLOFEN [Concomitant]
  5. CARBIDOPA AND LEVODOPA [Concomitant]
  6. LOVASTATIN [Concomitant]
  7. SPIRONOLACTONE [Concomitant]
  8. OMEPRAZOLE [Concomitant]
  9. NITROFURANTOIN [Concomitant]

REACTIONS (1)
  - Parkinson^s disease [Unknown]
